FAERS Safety Report 8397864-6 (Version None)
Quarter: 2012Q2

REPORT INFORMATION
  Report Type: 
  Country: None (occurrence: None)
  Receive Date: 20120531
  Receipt Date: 20120525
  Transmission Date: 20120825
  Serious: Yes (Death)
  Sender: FDA-Public Use
  Company Number: PHEH2012US010990

PATIENT
  Sex: Female

DRUGS (17)
  1. NAMENDA [Concomitant]
     Dosage: UNK UKN, UNK
  2. SYNTHROID [Concomitant]
     Dosage: UNK UKN, UNK
  3. CALCIUM [Concomitant]
     Dosage: UNK UKN, UNK
  4. ZOFRAN [Concomitant]
     Dosage: UNK UKN, UNK
  5. MIRALAX [Concomitant]
     Dosage: UNK UKN, UNK
  6. LISINOPRIL [Concomitant]
     Dosage: UNK UKN, UNK
  7. EVISTA [Concomitant]
     Dosage: UNK UKN, UNK
  8. GLEEVEC [Suspect]
     Dosage: 400 MG, DAILY
     Route: 048
     Dates: start: 20090309
  9. CARTIA XT [Concomitant]
     Dosage: UNK UKN, UNK
  10. ULTRAM [Concomitant]
     Dosage: UNK UKN, UNK
  11. PROTONIX [Concomitant]
     Dosage: UNK UKN, UNK
  12. RISPERDAL [Concomitant]
     Dosage: UNK UKN, UNK
  13. METOPROLOL TARTRATE [Concomitant]
     Dosage: UNK UKN, UNK
  14. DURAGESIC-100 [Concomitant]
     Dosage: UNK UKN, UNK
  15. PRAVASTATIN SODIUM [Concomitant]
     Dosage: UNK UKN, UNK
  16. ARICEPT [Concomitant]
     Dosage: UNK UKN, UNK
  17. TYLENOL [Concomitant]
     Dosage: UNK UKN, UNK

REACTIONS (1)
  - DEATH [None]
